FAERS Safety Report 5632522-X (Version None)
Quarter: 2008Q1

REPORT INFORMATION
  Report Type: 
  Country: None (occurrence: None)
  Receive Date: 20080219
  Receipt Date: 20080208
  Transmission Date: 20080703
  Serious: Yes (Disabling)
  Sender: FDA-Public Use
  Company Number: 2008AP000416

PATIENT
  Age: 63 Year
  Sex: Male

DRUGS (7)
  1. CITALOPRAM HYDROBROMIDE [Suspect]
     Indication: DEPRESSION
     Dosage: 40 MG; OD; PO
     Route: 048
  2. MOEXIPRIL HCL [Concomitant]
  3. ASCORBIC ACID [Concomitant]
  4. PRAVASTATIN [Concomitant]
  5. ESZOPICLONE [Concomitant]
  6. ASPIRIN [Concomitant]
  7. PANTOPRAOLE [Concomitant]

REACTIONS (2)
  - HIATUS HERNIA [None]
  - OESOPHAGEAL SPASM [None]
